FAERS Safety Report 24253164 (Version 1)
Quarter: 2024Q3

REPORT INFORMATION
  Report Type: Spontaneous
  Country: US (occurrence: None)
  Receive Date: 20240826
  Receipt Date: 20240826
  Transmission Date: 20241016
  Serious: No
  Sender: Public
  Company Number: None

PATIENT
  Age: 52 Year
  Sex: Female
  Weight: 81 kg

DRUGS (2)
  1. YUVAFEM [Suspect]
     Active Substance: ESTRADIOL HEMIHYDRATE
     Indication: Atrophic vulvovaginitis
     Dosage: OTHER QUANTITY : 1 TABLET(S);?OTHER FREQUENCY : TWICE/WEEK BEDTIME;?
     Route: 067
     Dates: start: 20240709, end: 20240803
  2. IRON [Concomitant]
     Active Substance: IRON

REACTIONS (3)
  - Mood altered [None]
  - Depression [None]
  - Suicidal ideation [None]

NARRATIVE: CASE EVENT DATE: 20240801
